FAERS Safety Report 13512720 (Version 2)
Quarter: 2017Q2

REPORT INFORMATION
  Report Type: Report from Study
  Country: US (occurrence: US)
  Receive Date: 20170504
  Receipt Date: 20170517
  Transmission Date: 20170830
  Serious: Yes (Hospitalization, Other)
  Sender: FDA-Public Use
  Company Number: US-GILEAD-2017-0270979

PATIENT
  Age: 54 Year
  Sex: Female
  Weight: 50 kg

DRUGS (22)
  1. FLUOCINOLONE [Concomitant]
     Active Substance: FLUOCINOLONE
  2. CALCIUM CITRATE/VITAMIN D [Concomitant]
     Active Substance: CALCIUM CITRATE\VITAMIN D
  3. AZELASTINE [Concomitant]
     Active Substance: AZELASTINE
  4. PREDNISONE. [Concomitant]
     Active Substance: PREDNISONE
  5. DOCUSATE SODIUM. [Concomitant]
     Active Substance: DOCUSATE SODIUM
  6. SENNOSIDES A+B [Concomitant]
     Active Substance: SENNOSIDES A AND B
  7. HYDROXYZINE HCL [Concomitant]
     Active Substance: HYDROXYZINE HYDROCHLORIDE
  8. RASUVO [Concomitant]
     Active Substance: METHOTREXATE SODIUM
  9. TEMAZEPAM. [Concomitant]
     Active Substance: TEMAZEPAM
  10. OMEPRAZOLE. [Concomitant]
     Active Substance: OMEPRAZOLE
  11. ALBUTEROL                          /00139501/ [Concomitant]
     Active Substance: ALBUTEROL
  12. FOLIC ACID. [Concomitant]
     Active Substance: FOLIC ACID
  13. POTASSIUM CHLORIDE. [Concomitant]
     Active Substance: POTASSIUM CHLORIDE
  14. AMBRISENTAN [Suspect]
     Active Substance: AMBRISENTAN
     Indication: PULMONARY ARTERIAL HYPERTENSION
     Dosage: 5 MG, QD
     Route: 048
     Dates: start: 20120302
  15. AMBRISENTAN [Suspect]
     Active Substance: AMBRISENTAN
     Indication: DERMATOMYOSITIS
  16. MELOXICAM. [Concomitant]
     Active Substance: MELOXICAM
  17. AMITRIPTYLINE [Concomitant]
     Active Substance: AMITRIPTYLINE
  18. HYDROXYCHLOROQUINE [Concomitant]
     Active Substance: HYDROXYCHLOROQUINE
  19. FLUTICASONE. [Concomitant]
     Active Substance: FLUTICASONE
  20. HYDROCODONE [Concomitant]
     Active Substance: HYDROCODONE
  21. MOMETASONE [Concomitant]
     Active Substance: MOMETASONE
  22. SOTALOL. [Concomitant]
     Active Substance: SOTALOL

REACTIONS (2)
  - Liver function test increased [Unknown]
  - Pancreatitis [Unknown]

NARRATIVE: CASE EVENT DATE: 20170422
